FAERS Safety Report 19654641 (Version 1)
Quarter: 2021Q3

REPORT INFORMATION
  Report Type: Spontaneous
  Country: US (occurrence: US)
  Receive Date: 20210804
  Receipt Date: 20210804
  Transmission Date: 20211014
  Serious: Yes (Hospitalization, Other)
  Sender: FDA-Public Use
  Company Number: US-SUN PHARMACEUTICAL INDUSTRIES LTD-2021R1-306493

PATIENT
  Age: 51 Year
  Sex: Male

DRUGS (2)
  1. GRAPEFRUIT. [Interacting]
     Active Substance: GRAPEFRUIT
     Indication: PRODUCT USED FOR UNKNOWN INDICATION
     Dosage: UNK (ESTIMATED TO BE APPROXIMATELY 500 ML/DAY)
     Route: 065
  2. METHADONE [Suspect]
     Active Substance: METHADONE HYDROCHLORIDE
     Indication: PRODUCT USED FOR UNKNOWN INDICATION
     Dosage: 90 MILLIGRAM, DAILY
     Route: 048

REACTIONS (2)
  - Food interaction [Recovering/Resolving]
  - Toxicity to various agents [Unknown]
